FAERS Safety Report 7971903-6 (Version None)
Quarter: 2011Q4

REPORT INFORMATION
  Report Type: 
  Country: None (occurrence: None)
  Receive Date: 20111212
  Receipt Date: 20111206
  Transmission Date: 20120403
  Serious: Yes (Disabling, Other)
  Sender: FDA-Public Use
  Company Number: PHEH2011US011030

PATIENT
  Sex: Female

DRUGS (2)
  1. AREDIA [Suspect]
     Indication: MULTIPLE MYELOMA
  2. ZOMETA [Suspect]
     Indication: MULTIPLE MYELOMA

REACTIONS (11)
  - OSTEONECROSIS OF JAW [None]
  - PAIN [None]
  - LIFE EXPECTANCY SHORTENED [None]
  - ANHEDONIA [None]
  - MASTICATION DISORDER [None]
  - EMOTIONAL DISTRESS [None]
  - EXPOSED BONE IN JAW [None]
  - DISCOMFORT [None]
  - INJURY [None]
  - ANXIETY [None]
  - DEFORMITY [None]
